FAERS Safety Report 19776682 (Version 1)
Quarter: 2021Q3

REPORT INFORMATION
  Report Type: Spontaneous
  Country: US (occurrence: US)
  Receive Date: 20210901
  Receipt Date: 20210901
  Transmission Date: 20211014
  Serious: No
  Sender: FDA-Public Use
  Company Number: US-KYOWAKIRIN-2021BKK014785

PATIENT

DRUGS (1)
  1. NOURIANZ [Suspect]
     Active Substance: ISTRADEFYLLINE
     Indication: PARKINSON^S DISEASE
     Dosage: UNK
     Route: 065
     Dates: start: 202003

REACTIONS (8)
  - Therapeutic response unexpected [Unknown]
  - On and off phenomenon [Unknown]
  - Dysphonia [Unknown]
  - Stress [Unknown]
  - Time perception altered [Unknown]
  - Inappropriate schedule of product administration [Unknown]
  - Thinking abnormal [Unknown]
  - Tremor [Unknown]
